FAERS Safety Report 26027282 (Version 2)
Quarter: 2025Q4

REPORT INFORMATION
  Report Type: Report from Study
  Country: US (occurrence: US)
  Receive Date: 20251111
  Receipt Date: 20251125
  Transmission Date: 20260118
  Serious: No
  Sender: AGIOS PHARMACEUTICALS
  Company Number: US-AGIOS-2510US04539

PATIENT
  Sex: Male

DRUGS (1)
  1. MITAPIVAT [Suspect]
     Active Substance: MITAPIVAT
     Indication: Pyruvate kinase deficiency anaemia
     Dosage: 50 MILLIGRAM, BID
     Route: 048
     Dates: start: 20250419

REACTIONS (8)
  - Change of bowel habit [Unknown]
  - Flatulence [Unknown]
  - Incontinence [Unknown]
  - Arthralgia [Unknown]
  - Dyspnoea [Unknown]
  - Sluggishness [Unknown]
  - Haemoglobin decreased [Unknown]
  - Constipation [Unknown]
